FAERS Safety Report 24375935 (Version 1)
Quarter: 2024Q3

REPORT INFORMATION
  Report Type: Other
  Country: JP (occurrence: JP)
  Receive Date: 20240928
  Receipt Date: 20240928
  Transmission Date: 20241016
  Serious: Yes (Hospitalization, Other)
  Sender: B BRAUN
  Company Number: JP-B.Braun Medical Inc.-2162161

PATIENT
  Age: 21 Year
  Sex: Female
  Weight: 57 kg

DRUGS (11)
  1. LIDOCAINE HYDROCHLORIDE [Suspect]
     Active Substance: LIDOCAINE HYDROCHLORIDE
     Indication: General anaesthesia
  2. MIDAZOLAM [Suspect]
     Active Substance: MIDAZOLAM
  3. ONDANSETRON [Concomitant]
     Active Substance: ONDANSETRON
  4. DEXAMETHASONE [Concomitant]
     Active Substance: DEXAMETHASONE
  5. KETOROLAC [Concomitant]
     Active Substance: KETOROLAC TROMETHAMINE
  6. ACETAMINOPHEN [Concomitant]
     Active Substance: ACETAMINOPHEN
  7. SUGAMMADEX [Concomitant]
     Active Substance: SUGAMMADEX
  8. SEVOFLURANE [Suspect]
     Active Substance: SEVOFLURANE
  9. ROCURONIUM [Suspect]
     Active Substance: ROCURONIUM BROMIDE
  10. PROPOFOL [Suspect]
     Active Substance: PROPOFOL
  11. FENTANYL [Suspect]
     Active Substance: FENTANYL\FENTANYL CITRATE

REACTIONS (2)
  - Language disorder [Recovered/Resolved]
  - Off label use [Recovered/Resolved]
